FAERS Safety Report 7247587-1 (Version None)
Quarter: 2011Q1

REPORT INFORMATION
  Report Type: 
  Country: None (occurrence: None)
  Receive Date: 20110127
  Receipt Date: 20110118
  Transmission Date: 20110831
  Serious: Yes (Other)
  Sender: FDA-Public Use
  Company Number: BR-ASTRAZENECA-2010SE33149

PATIENT
  Age: 62 Year
  Sex: Male
  Weight: 94 kg

DRUGS (7)
  1. ATACAND [Suspect]
     Indication: HYPERTENSION
     Route: 048
     Dates: end: 20090101
  2. ATACAND HCT [Suspect]
     Indication: HYPERTENSION
     Dosage: ONCE DAILY
     Route: 048
     Dates: start: 20091101, end: 20100601
  3. METOPROLOL SUCCINATE [Suspect]
     Indication: HYPERTENSION
     Route: 048
     Dates: start: 20090601, end: 20100601
  4. METOPROLOL SUCCINATE [Suspect]
     Route: 048
     Dates: start: 20100601
  5. AMLO [Concomitant]
     Indication: HYPERTENSION
  6. EXFORGE HCT [Suspect]
     Indication: HYPERTENSION
     Route: 048
     Dates: end: 20100801
  7. APRESOLINE [Concomitant]
     Indication: HYPERTENSION
     Route: 048
     Dates: start: 20100801

REACTIONS (4)
  - RENAL FAILURE [None]
  - BLOOD PRESSURE INADEQUATELY CONTROLLED [None]
  - BLOOD PRESSURE SYSTOLIC INCREASED [None]
  - DRUG INEFFECTIVE [None]
